FAERS Safety Report 12095497 (Version 2)
Quarter: 2016Q1

REPORT INFORMATION
  Report Type: Other
  Country: FR (occurrence: FR)
  Receive Date: 20160219
  Receipt Date: 20160302
  Transmission Date: 20160526
  Serious: Yes (Death, Hospitalization)
  Sender: FDA-Public Use
  Company Number: FR-HQ SPECIALTY-FR-2016INT000073

PATIENT
  Age: 87 Year
  Sex: Male

DRUGS (12)
  1. CORTANCYL [Concomitant]
     Active Substance: PREDNISONE
     Indication: RHEUMATOID ARTHRITIS
     Dosage: 5 MG, 1 D
     Route: 048
     Dates: start: 20150910, end: 201510
  2. ALLOPURINOL. [Concomitant]
     Active Substance: ALLOPURINOL
     Indication: PRODUCT USED FOR UNKNOWN INDICATION
     Dosage: 200 MG, 1 D
     Route: 048
     Dates: start: 20150910
  3. COUMADINE [Concomitant]
     Active Substance: WARFARIN SODIUM
     Dosage: 4 MG, 1 D
     Route: 048
     Dates: start: 201510
  4. METHOTREXATE SODIUM. [Suspect]
     Active Substance: METHOTREXATE SODIUM
     Dosage: 3 DF, 1 IN 1 W
     Route: 048
  5. CORTANCYL [Concomitant]
     Active Substance: PREDNISONE
     Dosage: 7.5 MG, 1 D
     Route: 048
     Dates: start: 201510
  6. COUMADINE [Concomitant]
     Active Substance: WARFARIN SODIUM
     Indication: NEPHROTIC SYNDROME
     Dosage: 0.5 DF, 1 D
     Route: 048
     Dates: start: 20150910, end: 201510
  7. MIRCERA [Concomitant]
     Active Substance: METHOXY POLYETHYLENE GLYCOL-EPOETIN BETA
     Indication: PRODUCT USED FOR UNKNOWN INDICATION
     Dosage: 1 DF, 1 MO
     Route: 065
     Dates: start: 201510
  8. TRUSOPT [Concomitant]
     Active Substance: DORZOLAMIDE HYDROCHLORIDE
     Indication: PRODUCT USED FOR UNKNOWN INDICATION
     Dosage: 2 DF (1 DOSAGE FORM, MORNING AND EVENING)
     Route: 047
     Dates: start: 201510
  9. MIANSERIN HYDROCHLORIDE [Concomitant]
     Active Substance: MIANSERIN HYDROCHLORIDE
     Indication: PRODUCT USED FOR UNKNOWN INDICATION
     Dosage: 10 MG, DAILY
     Route: 048
  10. METHOTREXATE SODIUM. [Suspect]
     Active Substance: METHOTREXATE SODIUM
     Indication: RHEUMATOID ARTHRITIS
     Dosage: 10 MG, 1 IN 1 W
     Route: 048
  11. SPECIAFOLDINE [Concomitant]
     Active Substance: FOLIC ACID
     Indication: RHEUMATOID ARTHRITIS
     Dosage: 5 MG, 2 IN 1 W
     Route: 048
  12. FLUVOXAMINE MALEATE. [Concomitant]
     Active Substance: FLUVOXAMINE MALEATE
     Indication: PRODUCT USED FOR UNKNOWN INDICATION
     Dosage: 50 MG, 1 D
     Route: 048

REACTIONS (9)
  - Bone marrow failure [Fatal]
  - Medication error [Unknown]
  - Respiratory tract congestion [Fatal]
  - Urinary retention [Fatal]
  - Mouth haemorrhage [Not Recovered/Not Resolved]
  - Accidental overdose [Unknown]
  - Pancytopenia [Unknown]
  - Infection [Fatal]
  - Decubitus ulcer [Fatal]

NARRATIVE: CASE EVENT DATE: 20151203
